FAERS Safety Report 16393369 (Version 2)
Quarter: 2019Q3

REPORT INFORMATION
  Report Type: Spontaneous
  Country: US (occurrence: US)
  Receive Date: 20190605
  Receipt Date: 20190708
  Transmission Date: 20191004
  Serious: Yes (Other)
  Sender: FDA-Public Use
  Company Number: US-PFIZER INC-2019238187

PATIENT
  Age: 53 Year

DRUGS (1)
  1. GABAPENTIN. [Suspect]
     Active Substance: GABAPENTIN
     Indication: COMPLEX REGIONAL PAIN SYNDROME
     Dosage: UNK
     Dates: start: 2016

REACTIONS (4)
  - Nerve injury [Unknown]
  - Off label use [Unknown]
  - Product use in unapproved indication [Unknown]
  - Ankle fracture [Unknown]

NARRATIVE: CASE EVENT DATE: 2016
